FAERS Safety Report 15598282 (Version 1)
Quarter: 2018Q4

REPORT INFORMATION
  Report Type: Spontaneous
  Country: US (occurrence: US)
  Receive Date: 20181108
  Receipt Date: 20181108
  Transmission Date: 20190205
  Serious: No
  Sender: FDA-Public Use
  Company Number: US-ALLERGAN-1801237US

PATIENT
  Age: 59 Year
  Sex: Male

DRUGS (3)
  1. RAPAFLO [Suspect]
     Active Substance: SILODOSIN
     Indication: POLLAKIURIA
     Dosage: 8 MG, QD
     Route: 048
     Dates: start: 20180104, end: 20180106
  2. LOVASTATIN. [Concomitant]
     Active Substance: LOVASTATIN
     Indication: BLOOD CHOLESTEROL INCREASED
     Dosage: 40 MG, QD
     Route: 048
  3. BABY ASPIRIN [Concomitant]
     Active Substance: ASPIRIN
     Indication: PRODUCT USED FOR UNKNOWN INDICATION
     Dosage: UNK
     Route: 048

REACTIONS (2)
  - Dizziness [Recovering/Resolving]
  - Headache [Recovering/Resolving]

NARRATIVE: CASE EVENT DATE: 20180105
